FAERS Safety Report 17407222 (Version 1)
Quarter: 2020Q1

REPORT INFORMATION
  Report Type: Spontaneous
  Country: US (occurrence: US)
  Receive Date: 20200211
  Receipt Date: 20200211
  Transmission Date: 20200409
  Serious: No
  Sender: FDA-Public Use
  Company Number: None

PATIENT
  Age: 21 Year
  Sex: Female
  Weight: 58.06 kg

DRUGS (4)
  1. MAGNESIUM [Concomitant]
     Active Substance: MAGNESIUM
  2. MIRENA [Suspect]
     Active Substance: LEVONORGESTREL
     Dates: start: 20180630, end: 20200210
  3. VITAMIN B12 [Concomitant]
     Active Substance: CYANOCOBALAMIN
  4. VITAMIN D [Concomitant]
     Active Substance: VITAMIN D NOS

REACTIONS (6)
  - Fatigue [None]
  - Muscle spasms [None]
  - Vaginal haemorrhage [None]
  - Immune system disorder [None]
  - Abdominal pain [None]
  - Depression [None]

NARRATIVE: CASE EVENT DATE: 20200210
